FAERS Safety Report 9747484 (Version 2)
Quarter: 2014Q1

REPORT INFORMATION
  Report Type: Spontaneous
  Country: US (occurrence: US)
  Receive Date: 20131212
  Receipt Date: 20140207
  Transmission Date: 20141002
  Serious: No
  Sender: FDA-Public Use
  Company Number: US-009507513-1312USA005438

PATIENT
  Age: 19 Year
  Sex: Female
  Weight: 107.3 kg

DRUGS (1)
  1. IMPLANON [Suspect]
     Indication: CONTRACEPTION
     Dosage: 1 ROD FOR 3 YEARS
     Route: 059
     Dates: start: 20130703

REACTIONS (3)
  - Implant site nodule [Recovered/Resolved]
  - Implant site nodule [Recovered/Resolved]
  - Pain [Recovered/Resolved]
